FAERS Safety Report 6296687-1 (Version None)
Quarter: 2009Q3

REPORT INFORMATION
  Report Type: 
  Country: None (occurrence: None)
  Receive Date: 20090804
  Receipt Date: 20090724
  Transmission Date: 20100115
  Serious: Yes (Hospitalization)
  Sender: FDA-Public Use
  Company Number: KR-ELI_LILLY_AND_COMPANY-KR200907005322

PATIENT
  Age: 51 Year
  Sex: Male

DRUGS (2)
  1. HUMALOG MIX 75/25 [Suspect]
     Indication: TYPE 2 DIABETES MELLITUS
     Dosage: 18 IU, 2/D
     Route: 058
     Dates: start: 20090620, end: 20090721
  2. HUMALOG MIX 75/25 [Suspect]
     Dosage: 22 IU, 2/D
     Route: 058
     Dates: start: 20090722

REACTIONS (1)
  - HYPERTHERMIA [None]
